FAERS Safety Report 8106524-8 (Version None)
Quarter: 2012Q1

REPORT INFORMATION
  Report Type: 
  Country: None (occurrence: None)
  Receive Date: 20120202
  Receipt Date: 20120127
  Transmission Date: 20120608
  Serious: Yes (Other)
  Sender: FDA-Public Use
  Company Number: CA-TEVA-319957USA

PATIENT
  Sex: Male

DRUGS (11)
  1. METHOTREXATE [Suspect]
     Indication: RHEUMATOID ARTHRITIS
     Dosage: 3.5714 MILLIGRAM;
     Route: 058
     Dates: start: 20080330
  2. NAPROXEN [Concomitant]
     Dates: start: 20080521
  3. ALENDRONATE SODIUM [Concomitant]
     Dates: start: 20080330
  4. FOLIC ACID [Concomitant]
     Dates: start: 20090910
  5. TOCOPHEROL CONCENTRATE CAP [Concomitant]
     Dates: start: 20080330
  6. ACETAMINOPHEN [Concomitant]
     Dates: start: 20100201
  7. PANTOPRAZOLE SODIUM [Concomitant]
     Dates: start: 20080428
  8. INVESTIGATIONAL DRUG (ABATACEPT0 [Suspect]
     Dosage: 17.8571 MILLIGRAM;
     Route: 058
     Dates: start: 20080618
  9. PANADEINE CO [Concomitant]
     Dates: start: 20080330
  10. PREDNISONE [Concomitant]
     Dates: start: 20101203
  11. LEVOTHYROXINE SODIUM [Concomitant]
     Dates: start: 20110418

REACTIONS (1)
  - BASAL CELL CARCINOMA [None]
